FAERS Safety Report 11196240 (Version 1)
Quarter: 2015Q2

REPORT INFORMATION
  Report Type: Spontaneous
  Country: FR (occurrence: FR)
  Receive Date: 20150617
  Receipt Date: 20150617
  Transmission Date: 20150821
  Serious: Yes (Death)
  Sender: FDA-Public Use
  Company Number: FR-SA-2015SA081532

PATIENT
  Age: 52 Year
  Sex: Female

DRUGS (13)
  1. NOZINAN [Suspect]
     Active Substance: LEVOMEPROMAZINE
     Indication: TOXICITY TO VARIOUS AGENTS
     Route: 048
     Dates: start: 201505, end: 201505
  2. SERTRALINE [Suspect]
     Active Substance: SERTRALINE HYDROCHLORIDE
     Indication: TOXICITY TO VARIOUS AGENTS
     Route: 048
     Dates: start: 201505, end: 201505
  3. XEROQUEL [Suspect]
     Active Substance: QUETIAPINE FUMARATE
     Indication: TOXICITY TO VARIOUS AGENTS
     Route: 048
     Dates: start: 201505, end: 201505
  4. TERALITHE [Suspect]
     Active Substance: LITHIUM CARBONATE
     Indication: TOXICITY TO VARIOUS AGENTS
     Route: 048
     Dates: start: 201505, end: 201505
  5. ZOPICLONE [Suspect]
     Active Substance: ZOPICLONE
     Indication: TOXICITY TO VARIOUS AGENTS
     Route: 048
     Dates: start: 201505, end: 201505
  6. TERCIAN [Suspect]
     Active Substance: CYAMEMAZINE
     Indication: TOXICITY TO VARIOUS AGENTS
     Route: 048
     Dates: start: 201505, end: 201505
  7. PROTHIADEN [Suspect]
     Active Substance: DOTHIEPIN HYDROCHLORIDE
     Indication: TOXICITY TO VARIOUS AGENTS
     Route: 048
     Dates: start: 201505, end: 201505
  8. CITALOPRAM [Suspect]
     Active Substance: CITALOPRAM HYDROBROMIDE
     Indication: TOXICITY TO VARIOUS AGENTS
     Route: 048
     Dates: start: 201505, end: 201505
  9. SERESTA [Suspect]
     Active Substance: OXAZEPAM
     Indication: TOXICITY TO VARIOUS AGENTS
     Route: 048
     Dates: start: 201505, end: 201505
  10. THERALENE [Suspect]
     Active Substance: TRIMEPRAZINE
     Indication: TOXICITY TO VARIOUS AGENTS
     Route: 048
     Dates: start: 201505, end: 201505
  11. URBANYL [Suspect]
     Active Substance: CLOBAZAM
     Indication: TOXICITY TO VARIOUS AGENTS
     Route: 048
     Dates: start: 201505, end: 201505
  12. ZOLPIDEM TARTRATE. [Suspect]
     Active Substance: ZOLPIDEM TARTRATE
     Indication: TOXICITY TO VARIOUS AGENTS
     Route: 048
     Dates: start: 201505, end: 201505
  13. CLOMIPRAMINE [Suspect]
     Active Substance: CLOMIPRAMINE
     Indication: TOXICITY TO VARIOUS AGENTS
     Route: 048
     Dates: start: 201505, end: 201505

REACTIONS (4)
  - Coma [Fatal]
  - Toxicity to various agents [Fatal]
  - Cardio-respiratory arrest [Fatal]
  - Hypoxia [Fatal]

NARRATIVE: CASE EVENT DATE: 201505
